FAERS Safety Report 24655381 (Version 2)
Quarter: 2024Q4

REPORT INFORMATION
  Report Type: Report from Study
  Country: US (occurrence: US)
  Receive Date: 20241123
  Receipt Date: 20241125
  Transmission Date: 20250115
  Serious: Yes (Death, Life-Threatening, Hospitalization)
  Sender: BOEHRINGER INGELHEIM
  Company Number: US-Komodo Health-a23aa000004MjdhAAC

PATIENT
  Age: 88 Year
  Sex: Male

DRUGS (2)
  1. OFEV [Suspect]
     Active Substance: NINTEDANIB
     Indication: Idiopathic pulmonary fibrosis
     Route: 048
     Dates: start: 2021, end: 20241118
  2. LOSARTAN [Concomitant]
     Active Substance: LOSARTAN
     Indication: Blood pressure measurement

REACTIONS (1)
  - Pneumonia [Fatal]

NARRATIVE: CASE EVENT DATE: 20241112
